FAERS Safety Report 17191901 (Version 1)
Quarter: 2019Q4

REPORT INFORMATION
  Report Type: Spontaneous
  Country: IN (occurrence: IN)
  Receive Date: 20191223
  Receipt Date: 20191223
  Transmission Date: 20200122
  Serious: Yes (Death, Other)
  Sender: FDA-Public Use
  Company Number: IN-PFIZER INC-2017043257

PATIENT
  Age: 73 Year
  Sex: Female

DRUGS (4)
  1. ORETA [Concomitant]
     Dosage: 2.5 MG, 1X/DAY
     Route: 048
  2. LETROZOLE. [Concomitant]
     Active Substance: LETROZOLE
     Dosage: 2.5 MG, MONTHLY
     Route: 048
  3. VITAMIN D [Concomitant]
     Active Substance: VITAMIN D NOS
     Dosage: 1 DF, 2X/DAY
  4. PALBACE [Suspect]
     Active Substance: PALBOCICLIB
     Indication: BREAST CANCER METASTATIC
     Dosage: 125 MG, CYCLIC (125 MG OD X 21DAYS STOP FOR 1 WEEK)
     Route: 048
     Dates: start: 20161125

REACTIONS (8)
  - Dyspnoea [Fatal]
  - Peripheral swelling [Fatal]
  - Decreased appetite [Unknown]
  - Anxiety [Unknown]
  - Malaise [Unknown]
  - White blood cell count decreased [Unknown]
  - Platelet count decreased [Unknown]
  - Stomatitis [Unknown]

NARRATIVE: CASE EVENT DATE: 2016
